FAERS Safety Report 5023490-2 (Version None)
Quarter: 2006Q2

REPORT INFORMATION
  Report Type: 
  Country: None (occurrence: None)
  Receive Date: 20060606
  Receipt Date: 20060518
  Transmission Date: 20061013
  Serious: Yes (Hospitalization)
  Sender: FDA-Public Use
  Company Number: DSA_28231_2006

PATIENT
  Age: 77 Year
  Sex: Female

DRUGS (4)
  1. DILTIAZEM HYDROCHLORIDE [Suspect]
     Indication: ANGINA PECTORIS
     Dosage: 200 MG Q DAY; PO
     Route: 048
  2. PLAVIX [Suspect]
     Indication: ARTERIOSCLEROSIS
     Dosage: 75 MG Q DAY; PO
     Route: 048
     Dates: start: 20060101
  3. PANTOPRAZOLE SODIUM [Suspect]
     Indication: OESOPHAGITIS
     Dosage: 1 DF Q DAY; PO
     Route: 048
  4. LAROXYL [Suspect]
     Indication: ANXIETY
     Dosage: 75 MG Q DAY; PO
     Route: 048
     Dates: start: 20060117, end: 20060119

REACTIONS (3)
  - RASH ERYTHEMATOUS [None]
  - RASH PAPULAR [None]
  - URTICARIA [None]
